FAERS Safety Report 12779257 (Version 1)
Quarter: 2016Q3

REPORT INFORMATION
  Report Type: Spontaneous
  Country: US (occurrence: US)
  Receive Date: 20160926
  Receipt Date: 20160926
  Transmission Date: 20161109
  Serious: No
  Sender: FDA-Public Use
  Company Number: US-JAZZ-2016-US-011346

PATIENT
  Sex: Female

DRUGS (33)
  1. KLONOPIN [Concomitant]
     Active Substance: CLONAZEPAM
  2. CLARITIN [Concomitant]
     Active Substance: LORATADINE
  3. EC-NAPROSYN [Concomitant]
     Active Substance: NAPROXEN
  4. VYVANSE [Concomitant]
     Active Substance: LISDEXAMFETAMINE DIMESYLATE
  5. XYREM [Suspect]
     Active Substance: SODIUM OXYBATE
     Dosage: 5.25 G, FIRST DOSE
     Route: 048
     Dates: start: 201605
  6. MAGNESIUM CITRATE. [Concomitant]
     Active Substance: MAGNESIUM CITRATE
  7. NALTREXONE HCL [Concomitant]
     Active Substance: NALTREXONE HYDROCHLORIDE
  8. PROAIR HFA [Concomitant]
     Active Substance: ALBUTEROL SULFATE
  9. CELEBREX [Concomitant]
     Active Substance: CELECOXIB
  10. XYREM [Suspect]
     Active Substance: SODIUM OXYBATE
     Indication: NARCOLEPSY
     Dosage: 2.25 G, BID
     Route: 048
     Dates: start: 200405, end: 200407
  11. AMBIEN [Concomitant]
     Active Substance: ZOLPIDEM TARTRATE
  12. ADVAIR HFA [Concomitant]
     Active Substance: FLUTICASONE PROPIONATE\SALMETEROL XINAFOATE
  13. CHROMIUM PICOLINATE [Concomitant]
     Active Substance: CHROMIUM PICOLINATE
  14. KRILL OIL [Concomitant]
     Active Substance: DIETARY SUPPLEMENT
  15. LUGOL [Concomitant]
     Active Substance: IODINE\POTASSIUM IODIDE
  16. VITAMIN D3 [Concomitant]
     Active Substance: CHOLECALCIFEROL
  17. CYTOMEL [Concomitant]
     Active Substance: LIOTHYRONINE SODIUM
  18. METAMUCIL [Concomitant]
     Active Substance: PLANTAGO SEED
  19. SYSTANE BALANCE [Concomitant]
     Active Substance: PROPYLENE GLYCOL
  20. XYREM [Suspect]
     Active Substance: SODIUM OXYBATE
     Dosage: 4.25 G, SECOND DOSE
     Route: 048
     Dates: start: 201605
  21. CHLORELLA [Concomitant]
  22. FLONASE [Concomitant]
     Active Substance: FLUTICASONE PROPIONATE
  23. REFRESH TEARS [Concomitant]
     Active Substance: CARBOXYMETHYLCELLULOSE SODIUM
  24. TYLENOL EXTRA STRENGTH [Concomitant]
     Active Substance: ACETAMINOPHEN
  25. GAS-X [Concomitant]
     Active Substance: DIMETHICONE
  26. MIRALAX [Concomitant]
     Active Substance: POLYETHYLENE GLYCOL 3350
  27. NEXIUM [Concomitant]
     Active Substance: ESOMEPRAZOLE MAGNESIUM
  28. SYNTHROID [Concomitant]
     Active Substance: LEVOTHYROXINE SODIUM
  29. XYREM [Suspect]
     Active Substance: SODIUM OXYBATE
     Dosage: DOSE ADJUSTMENTS
     Route: 048
     Dates: start: 200407, end: 201605
  30. DDAVP [Concomitant]
     Active Substance: DESMOPRESSIN ACETATE
  31. SALINE [Concomitant]
     Active Substance: SODIUM CHLORIDE
  32. NASONEX [Concomitant]
     Active Substance: MOMETASONE FUROATE
  33. PREVACID [Concomitant]
     Active Substance: LANSOPRAZOLE

REACTIONS (2)
  - Turbinoplasty [Unknown]
  - Limb injury [Unknown]

NARRATIVE: CASE EVENT DATE: 2006
